FAERS Safety Report 8112184-2 (Version None)
Quarter: 2012Q1

REPORT INFORMATION
  Report Type: 
  Country: None (occurrence: None)
  Receive Date: 20120202
  Receipt Date: 20120202
  Transmission Date: 20120608
  Serious: Yes (Death)
  Sender: FDA-Public Use
  Company Number: None

PATIENT
  Age: 83 Year
  Sex: Female

DRUGS (1)
  1. DABIGATRAN 75MG [Suspect]
     Dosage: 75 MG BID 047
     Route: 048

REACTIONS (4)
  - HAEMORRHAGE [None]
  - DISSEMINATED INTRAVASCULAR COAGULATION [None]
  - SEPTIC SHOCK [None]
  - HYPOVOLAEMIC SHOCK [None]
